FAERS Safety Report 22219837 (Version 1)
Quarter: 2023Q2

REPORT INFORMATION
  Report Type: Spontaneous
  Country: US (occurrence: None)
  Receive Date: 20230414
  Receipt Date: 20230414
  Transmission Date: 20230721
  Serious: Yes (Death, Hospitalization)
  Sender: FDA-Public Use
  Company Number: None

PATIENT
  Age: 90 Year
  Sex: Male

DRUGS (5)
  1. PIRFENIDONE [Suspect]
     Active Substance: PIRFENIDONE
     Indication: Pulmonary fibrosis
     Dosage: FREQUENCY : 3 TIMES A DAY;?
     Route: 048
     Dates: start: 20220128, end: 20230403
  2. LISINOPRIL [Concomitant]
  3. ESCITALOPRAM [Concomitant]
  4. FAMOTIDINE [Concomitant]
     Active Substance: FAMOTIDINE
  5. FLUOROURACIL [Concomitant]

REACTIONS (3)
  - Haemorrhagic stroke [None]
  - Pneumonia [None]
  - Disease complication [None]

NARRATIVE: CASE EVENT DATE: 20230330
